FAERS Safety Report 7465093 (Version 3)
Quarter: 2013Q4

REPORT INFORMATION
  Report Type: Spontaneous
  Country: US (occurrence: US)
  Receive Date: 20100712
  Receipt Date: 20131227
  Transmission Date: 20140711
  Serious: No
  Sender: FDA-Public Use
  Company Number: US-BIOGENIDEC-2010BI022671

PATIENT
  Age: 56 Year
  Sex: Female
  Weight: 54 kg

DRUGS (1)
  1. TYSABRI [Suspect]
     Indication: MULTIPLE SCLEROSIS
     Route: 042
     Dates: start: 20090625

REACTIONS (12)
  - Vitreous floaters [Not Recovered/Not Resolved]
  - Vitritis [Unknown]
  - Refraction disorder [Unknown]
  - Vitreous detachment [Unknown]
  - Visual impairment [Not Recovered/Not Resolved]
  - Glaucoma [Not Recovered/Not Resolved]
  - Cataract [Not Recovered/Not Resolved]
  - Dehydration [Not Recovered/Not Resolved]
  - Vitreous haemorrhage [Recovered/Resolved]
  - Herpes zoster [Recovered/Resolved]
  - Herpes zoster oticus [Recovered/Resolved]
  - Oral herpes [Recovered/Resolved]
